FAERS Safety Report 9500497 (Version 2)
Quarter: 2013Q4

REPORT INFORMATION
  Report Type: Spontaneous
  Country: US (occurrence: US)
  Receive Date: 20130905
  Receipt Date: 20131001
  Transmission Date: 20140711
  Serious: Yes (Hospitalization, Other)
  Sender: FDA-Public Use
  Company Number: US-ASTELLAS-2013US009241

PATIENT
  Age: 55 Year
  Sex: Female
  Weight: 88 kg

DRUGS (28)
  1. PROGRAF [Suspect]
     Indication: LIVER TRANSPLANT
     Dosage: 4 MG, UID/QD
     Route: 048
     Dates: start: 2008
  2. PROGRAF [Suspect]
     Dosage: 3 MG, BID
     Route: 048
  3. MYCOPHENOLATE MOFETIL [Concomitant]
     Indication: LIVER TRANSPLANT
     Dosage: UNK
     Route: 065
  4. PREDNISONE [Concomitant]
     Indication: LIVER TRANSPLANT
     Dosage: 10 MG, UID/QD
     Route: 048
  5. PREDNISONE [Concomitant]
     Dosage: 20 MG, UID/QD
     Route: 048
  6. IMURAN                             /00001501/ [Concomitant]
     Indication: PRODUCT USED FOR UNKNOWN INDICATION
     Dosage: 100 MG, UID/QD
     Route: 048
  7. IMURAN                             /00001501/ [Concomitant]
     Dosage: 50 MG, UID/QD
     Route: 048
  8. NEURONTIN [Concomitant]
     Indication: TREMOR
     Dosage: 900 MG, 1 IN AM, 2 IN PM
     Route: 048
  9. NEURONTIN [Concomitant]
     Dosage: 300 MG, UID/QD
     Route: 048
  10. LOPRESSOR [Concomitant]
     Indication: PRODUCT USED FOR UNKNOWN INDICATION
     Dosage: 25 MG, BID
     Route: 048
  11. CALCITRIOL [Concomitant]
     Indication: PRODUCT USED FOR UNKNOWN INDICATION
     Dosage: 0.25 UG, 3X/WEEK
  12. ESTRADIOL [Concomitant]
     Indication: PRODUCT USED FOR UNKNOWN INDICATION
     Dosage: 0.25 MG, WEEKLY
     Route: 061
  13. ADVAIR [Concomitant]
     Indication: PRODUCT USED FOR UNKNOWN INDICATION
     Dosage: UNK
     Route: 055
  14. SPIRIVA HANDIHALER [Concomitant]
     Indication: PRODUCT USED FOR UNKNOWN INDICATION
     Dosage: 18 UG, UID/QD
     Route: 055
  15. ALBUTEROL HFA [Concomitant]
     Indication: PRODUCT USED FOR UNKNOWN INDICATION
     Dosage: 180 UG, PRN
     Route: 055
  16. ZOLPIDEM [Concomitant]
     Indication: PRODUCT USED FOR UNKNOWN INDICATION
     Dosage: 10 MG, UID/QD
     Route: 048
  17. ZOLPIDEM [Concomitant]
     Dosage: 5 MG, UID/QD
     Route: 048
  18. ZOFRAN                             /00955302/ [Concomitant]
     Indication: NAUSEA
     Dosage: 8 MG, PRN
     Route: 048
  19. ERGOCALCIFEROL [Concomitant]
     Indication: VITAMIN D DEFICIENCY
     Dosage: 50000 DF, WEEKLY
     Route: 048
  20. VIIBRYD [Concomitant]
     Indication: PRODUCT USED FOR UNKNOWN INDICATION
     Dosage: 20 MG, UID/QD
     Route: 048
  21. DOXYCYCLINE HYCLATE [Concomitant]
     Indication: PRODUCT USED FOR UNKNOWN INDICATION
     Dosage: UNK
     Route: 065
  22. LEVAQUIN [Concomitant]
     Indication: PRODUCT USED FOR UNKNOWN INDICATION
     Dosage: UNK
     Route: 065
  23. FUROSEMIDE [Concomitant]
     Indication: PRODUCT USED FOR UNKNOWN INDICATION
     Dosage: 40 MG, UNKNOWN/D
     Route: 048
  24. POLYETHYLENE GLYCOL [Concomitant]
     Indication: PRODUCT USED FOR UNKNOWN INDICATION
     Dosage: UNK
     Route: 048
  25. NYSTATIN [Concomitant]
     Indication: PRODUCT USED FOR UNKNOWN INDICATION
     Dosage: 5 ML, Q6 HOURS
     Route: 048
  26. LACTULOSE [Concomitant]
     Indication: DIARRHOEA
     Dosage: 30 ML, BID
     Route: 048
  27. TYGACIL [Concomitant]
     Indication: PRODUCT USED FOR UNKNOWN INDICATION
     Dosage: 100 MG, TOTAL DOSE
     Route: 042
     Dates: start: 20130821, end: 20130821
  28. TYGACIL [Concomitant]
     Dosage: 50 MG, BID
     Route: 042
     Dates: start: 20130822, end: 20130911

REACTIONS (41)
  - Drug ineffective [Unknown]
  - Renal transplant [Unknown]
  - Pulmonary arterial pressure increased [Unknown]
  - Pulmonary hypertension [Unknown]
  - Bronchial hyperreactivity [Unknown]
  - Hepatic steatosis [Unknown]
  - Streptococcal infection [Recovered/Resolved]
  - Hepatic enzyme increased [Unknown]
  - Lung infection [Recovering/Resolving]
  - Deep vein thrombosis [Recovered/Resolved]
  - Low density lipoprotein increased [Unknown]
  - Renal impairment [Unknown]
  - Staphylococcal infection [Unknown]
  - Cellulitis [Unknown]
  - Transplant rejection [Unknown]
  - Lung neoplasm malignant [Unknown]
  - Hepatic artery thrombosis [Unknown]
  - Bile duct necrosis [Unknown]
  - Pneumonia [Unknown]
  - Nephropathy toxic [Unknown]
  - Enterococcal infection [Unknown]
  - Gastrointestinal haemorrhage [Unknown]
  - Ageusia [Unknown]
  - Irritable bowel syndrome [Unknown]
  - Vitamin D deficiency [Unknown]
  - Nephrolithiasis [Unknown]
  - Alopecia [Unknown]
  - Diarrhoea [Not Recovered/Not Resolved]
  - Hypoaesthesia [Not Recovered/Not Resolved]
  - Muscular weakness [Not Recovered/Not Resolved]
  - Hyperglycaemia [Recovering/Resolving]
  - Hypertension [Recovering/Resolving]
  - Migraine [Not Recovered/Not Resolved]
  - Tremor [Not Recovered/Not Resolved]
  - Dizziness [Unknown]
  - Vomiting [Unknown]
  - Flank pain [Unknown]
  - Oral candidiasis [Unknown]
  - Neuropathy peripheral [Unknown]
  - Depression [Unknown]
  - Anxiety [Unknown]
